FAERS Safety Report 7592623-6 (Version None)
Quarter: 2011Q2

REPORT INFORMATION
  Report Type: 
  Country: None (occurrence: None)
  Receive Date: 20110623
  Receipt Date: 20110610
  Transmission Date: 20111010
  Serious: Yes (Other)
  Sender: FDA-Public Use
  Company Number: 2011-2069

PATIENT

DRUGS (1)
  1. APO-GO AMPOULES (APO-GO) (APOMORPHINE HYDROCHLORIDE) [Suspect]
     Indication: PARKINSON'S DISEASE
     Dosage: MEDIAN OF 5.0 MG/H (CONTINUOUS INFUSION (MEDIAN  15 H/DAY), SUBCUTANEOUS
     Route: 058

REACTIONS (11)
  - SUBCUTANEOUS NODULE [None]
  - CARDIAC FAILURE [None]
  - VOMITING [None]
  - FATIGUE [None]
  - DYSPNOEA [None]
  - PSYCHOTIC DISORDER [None]
  - DEMENTIA [None]
  - NAUSEA [None]
  - DIZZINESS [None]
  - HEADACHE [None]
  - OEDEMA PERIPHERAL [None]
